FAERS Safety Report 8588819-7 (Version None)
Quarter: 2012Q3

REPORT INFORMATION
  Report Type: 
  Country: None (occurrence: None)
  Receive Date: 20120803
  Receipt Date: 20120803
  Transmission Date: 20120928
  Serious: No
  Sender: FDA-Public Use
  Company Number: None

PATIENT
  Age: 17 Year
  Sex: Female
  Weight: 54.4316 kg

DRUGS (2)
  1. ISONIAZID [Suspect]
     Dosage: 900MG WEEKLY PO
     Route: 048
  2. RIFAPENTINE 150MG SANOFI AVENTIS [Suspect]
     Indication: LATENT TUBERCULOSIS
     Dosage: 900MG WEEKLY PO
     Route: 048
     Dates: start: 20120606, end: 20120613

REACTIONS (2)
  - DIZZINESS [None]
  - DRUG INTOLERANCE [None]
